FAERS Safety Report 16831866 (Version 1)
Quarter: 2019Q3

REPORT INFORMATION
  Report Type: Spontaneous
  Country: US (occurrence: US)
  Receive Date: 20190730
  Receipt Date: 20190730
  Transmission Date: 20191005
  Serious: Yes (Hospitalization)
  Sender: FDA-Public Use
  Company Number: None

PATIENT
  Age: 48 Year
  Sex: Female

DRUGS (20)
  1. SPIRONOLACTONE. [Suspect]
     Active Substance: SPIRONOLACTONE
  2. PREDNISONE. [Concomitant]
     Active Substance: PREDNISONE
  3. LASIX [Concomitant]
     Active Substance: FUROSEMIDE
  4. MELATONIN [Concomitant]
     Active Substance: MELATONIN
  5. MVI [Concomitant]
     Active Substance: VITAMINS
  6. METOLAZONE. [Concomitant]
     Active Substance: METOLAZONE
  7. K-TAB [Concomitant]
     Active Substance: POTASSIUM CHLORIDE
  8. FERROUS SULFATE. [Concomitant]
     Active Substance: FERROUS SULFATE
  9. OMEPRAZOLE. [Concomitant]
     Active Substance: OMEPRAZOLE
  10. ZOFRAN [Concomitant]
     Active Substance: ONDANSETRON HYDROCHLORIDE
  11. FUNGOID TINCTURE [Concomitant]
     Active Substance: MICONAZOLE NITRATE
  12. PROZAC [Concomitant]
     Active Substance: FLUOXETINE HYDROCHLORIDE
  13. REMODULIN [Concomitant]
     Active Substance: TREPROSTINIL
  14. AMBRISENTAN 10MG TABLETS 30/BO: 10MG [Suspect]
     Active Substance: AMBRISENTAN
     Indication: PULMONARY ARTERIAL HYPERTENSION
     Route: 048
     Dates: start: 201408
  15. NORCO [Concomitant]
     Active Substance: ACETAMINOPHEN\HYDROCODONE BITARTRATE
  16. ENOXAPARIN [Concomitant]
     Active Substance: ENOXAPARIN
  17. PANTOPRAZOLE [Concomitant]
     Active Substance: PANTOPRAZOLE
  18. TRAMADOL. [Concomitant]
     Active Substance: TRAMADOL
  19. TRAZODONE [Concomitant]
     Active Substance: TRAZODONE HYDROCHLORIDE
  20. SIMVASTATIN. [Concomitant]
     Active Substance: SIMVASTATIN

REACTIONS (2)
  - Complication associated with device [None]
  - Product dose omission [None]

NARRATIVE: CASE EVENT DATE: 20190717
